FAERS Safety Report 9142678 (Version 4)
Quarter: 2014Q2

REPORT INFORMATION
  Report Type: Report from Study
  Country: BD (occurrence: BD)
  Receive Date: 20130306
  Receipt Date: 20140410
  Transmission Date: 20141212
  Serious: Yes (Death, Hospitalization, Other)
  Sender: FDA-Public Use
  Company Number: PHHY2013BD021393

PATIENT
  Age: 80 Year
  Sex: Male

DRUGS (1)
  1. EXELON PATCH [Suspect]
     Indication: DEMENTIA
     Dosage: 4.6 MG (PATCH 5CM2), DAILY
     Route: 062
     Dates: start: 201209

REACTIONS (4)
  - Nasopharyngitis [Fatal]
  - Nervous system disorder [Fatal]
  - Abnormal behaviour [Unknown]
  - Speech disorder [Unknown]
